FAERS Safety Report 11517791 (Version 1)
Quarter: 2015Q3

REPORT INFORMATION
  Report Type: Spontaneous
  Country: FR (occurrence: FR)
  Receive Date: 20150917
  Receipt Date: 20150917
  Transmission Date: 20151125
  Serious: Yes (Hospitalization, Other)
  Sender: FDA-Public Use
  Company Number: FR-ASTRAZENECA-2015SE88249

PATIENT
  Age: 772 Month
  Sex: Male

DRUGS (9)
  1. EZETROL [Concomitant]
     Active Substance: EZETIMIBE
  2. VINCRISTINE [Suspect]
     Active Substance: VINCRISTINE
     Indication: LYMPHOMA
     Dosage: 4 COURSES
     Route: 042
     Dates: start: 201204, end: 201209
  3. FLUDARABINE [Suspect]
     Active Substance: FLUDARABINE PHOSPHATE
     Indication: LYMPHOMA
     Dosage: 1 COURSE
     Route: 042
     Dates: start: 201209, end: 201209
  4. INEXIUM [Suspect]
     Active Substance: ESOMEPRAZOLE
     Indication: GASTROOESOPHAGEAL REFLUX DISEASE
     Route: 048
  5. ADRIBLASTINE [Suspect]
     Active Substance: DOXORUBICIN
     Indication: LYMPHOMA
     Dosage: 4 COURSES
     Route: 042
     Dates: start: 201204, end: 201209
  6. ENDOXAN [Suspect]
     Active Substance: CYCLOPHOSPHAMIDE
     Indication: LYMPHOMA
     Dosage: 7 COURSES
     Route: 042
     Dates: start: 201204, end: 201209
  7. PREVISCAN [Suspect]
     Active Substance: FLUINDIONE
     Indication: ATRIAL FIBRILLATION
     Route: 048
  8. MABTHERA [Suspect]
     Active Substance: RITUXIMAB
     Indication: LYMPHOMA
     Dosage: 6 COURSES
     Route: 042
     Dates: start: 201204, end: 201209
  9. PREDNISONE. [Suspect]
     Active Substance: PREDNISONE
     Indication: LYMPHOMA
     Dosage: 4 COURSES
     Route: 042
     Dates: start: 201204, end: 201209

REACTIONS (15)
  - Tendonitis [Unknown]
  - Vomiting [Unknown]
  - International normalised ratio increased [Unknown]
  - Hypovolaemia [Unknown]
  - Central nervous system leukaemia [Unknown]
  - Anaemia [Unknown]
  - Retroperitoneal fibrosis [Not Recovered/Not Resolved]
  - Plasma cell myeloma [Unknown]
  - Pyrexia [Unknown]
  - Pleural disorder [Unknown]
  - Pyelocaliectasis [Unknown]
  - Lung disorder [Unknown]
  - Lymphoplasmacytoid lymphoma/immunocytoma [Unknown]
  - Retroperitoneal haematoma [Unknown]
  - Acute kidney injury [Unknown]

NARRATIVE: CASE EVENT DATE: 201107
